FAERS Safety Report 5597665-8 (Version None)
Quarter: 2008Q1

REPORT INFORMATION
  Report Type: 
  Country: None (occurrence: None)
  Receive Date: 20080121
  Receipt Date: 20071023
  Transmission Date: 20080703
  Serious: Yes (Hospitalization)
  Sender: FDA-Public Use
  Company Number: SI-ELI_LILLY_AND_COMPANY-SI200710002451

PATIENT
  Age: 70 Year
  Sex: Female

DRUGS (4)
  1. DULOXETINE HYDROCHLORIDE [Suspect]
     Indication: DEPRESSION
     Dosage: 60 MG, DAILY (1/D)
     Route: 048
     Dates: start: 20070625, end: 20070101
  2. DULOXETINE HYDROCHLORIDE [Suspect]
     Dosage: 90 MG, UNKNOWN
     Route: 048
     Dates: start: 20070101, end: 20070827
  3. ZYPREXA [Concomitant]
     Indication: DEPRESSION
     Dosage: UNK, UNKNOWN
     Route: 065
  4. LYRICA [Concomitant]
     Indication: AGITATION
     Dosage: UNK, UNKNOWN
     Route: 065

REACTIONS (4)
  - DEPRESSION [None]
  - PAIN [None]
  - PSYCHOMOTOR HYPERACTIVITY [None]
  - SUICIDE ATTEMPT [None]
